FAERS Safety Report 4458151-1 (Version None)
Quarter: 2004Q3

REPORT INFORMATION
  Report Type: 
  Country: None (occurrence: None)
  Receive Date: 20040924
  Receipt Date: 20030605
  Transmission Date: 20050211
  Serious: Yes (Hospitalization, Disabling, Other)
  Sender: FDA-Public Use
  Company Number: US-MERCK-0306USA00632

PATIENT
  Age: 41 Year
  Sex: Male
  Weight: 127 kg

DRUGS (2)
  1. VIOXX [Suspect]
     Route: 048
     Dates: start: 19990901
  2. VIOXX [Suspect]
     Route: 048

REACTIONS (11)
  - ADVERSE EVENT [None]
  - ANAEMIA [None]
  - ANXIETY [None]
  - ARTHROPATHY [None]
  - CONTUSION [None]
  - FALL [None]
  - GASTRIC HAEMORRHAGE [None]
  - HYPERTENSION [None]
  - JOINT SPRAIN [None]
  - LOCALISED OSTEOARTHRITIS [None]
  - UPPER RESPIRATORY TRACT INFECTION [None]
